FAERS Safety Report 9106622 (Version 3)
Quarter: 2013Q4

REPORT INFORMATION
  Report Type: Report from Study
  Country: AT (occurrence: AT)
  Receive Date: 20130221
  Receipt Date: 20131209
  Transmission Date: 20140711
  Serious: Yes (Death, Hospitalization)
  Sender: FDA-Public Use
  Company Number: PHHO2013AT002716

PATIENT
  Sex: 0

DRUGS (3)
  1. EVEROLIMUS [Suspect]
     Indication: HEPATOCELLULAR CARCINOMA
     Dosage: 5 MG, UNK
     Route: 048
     Dates: start: 20121009
  2. SORAFENIB [Suspect]
     Indication: HEPATOCELLULAR CARCINOMA
     Dosage: 800 MG, UNK
     Route: 048
     Dates: start: 20121009
  3. CHEMOTHERAPEUTICS [Concomitant]

REACTIONS (5)
  - Malignant neoplasm progression [Fatal]
  - Liver disorder [Not Recovered/Not Resolved]
  - Ascites [Unknown]
  - Fatigue [Unknown]
  - Infection [Unknown]
